FAERS Safety Report 16312518 (Version 1)
Quarter: 2019Q2

REPORT INFORMATION
  Report Type: Spontaneous
  Country: US (occurrence: US)
  Receive Date: 20190515
  Receipt Date: 20190515
  Transmission Date: 20190711
  Serious: No
  Sender: FDA-Public Use
  Company Number: US-TEVA-2019-US-1045924

PATIENT
  Age: 33 Year
  Sex: Male

DRUGS (3)
  1. TADALAFIL TABLET [Suspect]
     Active Substance: TADALAFIL
     Indication: ERECTILE DYSFUNCTION
     Dosage: DOSE STRENGTH:  20.
  2. METOPROLOL. [Concomitant]
     Active Substance: METOPROLOL
  3. XANAX [Concomitant]
     Active Substance: ALPRAZOLAM

REACTIONS (1)
  - Feeling hot [Unknown]
